FAERS Safety Report 19461671 (Version 1)
Quarter: 2021Q2

REPORT INFORMATION
  Report Type: Spontaneous
  Country: US (occurrence: US)
  Receive Date: 20210625
  Receipt Date: 20210625
  Transmission Date: 20210717
  Serious: No
  Sender: FDA-Public Use
  Company Number: US-IPCA LABORATORIES LIMITED-IPC201105-001516

PATIENT

DRUGS (7)
  1. SLEXERIL [Concomitant]
     Indication: MYALGIA
     Dosage: UNK,UNK,100 MG/DAY
  2. CYNDALTA [Concomitant]
     Indication: MYALGIA
     Dosage: UNK,UNK,90 MG (30MG IN MORNING; 60MG IN EVENING)
  3. HYDROXYCHLOROQUINE SULFATE. [Suspect]
     Active Substance: HYDROXYCHLOROQUINE SULFATE
     Dosage: UNK,UNK,UNKNOWN
     Route: 048
     Dates: start: 201104, end: 201104
  4. CARBAZIM [Concomitant]
     Indication: SINUS TACHYCARDIA
     Dosage: UNK,UNK,240 MG/DAY
  5. HYDROXYCHLOROQUINE SULFATE TABLETS, USP [Suspect]
     Active Substance: HYDROXYCHLOROQUINE SULFATE
     Indication: SYSTEMIC LUPUS ERYTHEMATOSUS
     Dosage: UNK,UNK,UNKNOWN
     Dates: start: 201104, end: 201104
  6. PRAVACID [Concomitant]
     Indication: OESOPHAGITIS
     Dosage: UNK,UNK,30 MG/DAY
  7. NEURONTIN [Concomitant]
     Active Substance: GABAPENTIN
     Indication: NERVE INJURY
     Dosage: UNK,UNK,100 MG/ DAY

REACTIONS (6)
  - Vomiting [Recovered/Resolved]
  - Abdominal pain upper [Recovered/Resolved]
  - Weight decreased [Recovered/Resolved]
  - Vertigo [Recovered/Resolved]
  - Nausea [Recovered/Resolved]
  - Decreased appetite [Recovered/Resolved]

NARRATIVE: CASE EVENT DATE: 201104
